FAERS Safety Report 6263165-5 (Version None)
Quarter: 2009Q3

REPORT INFORMATION
  Report Type: 
  Country: None (occurrence: None)
  Receive Date: 20090708
  Receipt Date: 20090708
  Transmission Date: 20100115
  Serious: Yes (Other)
  Sender: FDA-Public Use
  Company Number: None

PATIENT
  Age: 51 Year
  Sex: Female
  Weight: 105.5 kg

DRUGS (1)
  1. ZICAM GEL [Suspect]
     Indication: NASOPHARYNGITIS
     Dosage: USED ONCE
     Dates: start: 20090310

REACTIONS (4)
  - ANOSMIA [None]
  - HYPOSMIA [None]
  - NASAL DISCOMFORT [None]
  - NASAL INFLAMMATION [None]
